FAERS Safety Report 13788013 (Version 1)
Quarter: 2017Q3

REPORT INFORMATION
  Report Type: Spontaneous
  Country: US (occurrence: US)
  Receive Date: 20170725
  Receipt Date: 20170725
  Transmission Date: 20171127
  Serious: No
  Sender: FDA-Public Use
  Company Number: US-JNJFOC-20170614511

PATIENT
  Age: 15 Year
  Sex: Female
  Weight: 56.7 kg

DRUGS (2)
  1. CHILDRENS MOTRIN [Suspect]
     Active Substance: IBUPROFEN
     Route: 048
  2. CHILDRENS MOTRIN [Suspect]
     Active Substance: IBUPROFEN
     Indication: DYSMENORRHOEA
     Dosage: 3 TEASPOONFUL, 1X PER DAY (ONCE)
     Route: 048
     Dates: start: 20170613

REACTIONS (3)
  - Product use in unapproved indication [Unknown]
  - Drug administered to patient of inappropriate age [Unknown]
  - Therapeutic response unexpected [Unknown]

NARRATIVE: CASE EVENT DATE: 20170613
